APPROVED DRUG PRODUCT: THIORIDAZINE HYDROCHLORIDE
Active Ingredient: THIORIDAZINE HYDROCHLORIDE
Strength: 25MG
Dosage Form/Route: TABLET;ORAL
Application: A089104 | Product #001
Applicant: SUPERPHARM CORP
Approved: Jul 2, 1985 | RLD: No | RS: No | Type: DISCN